FAERS Safety Report 16324150 (Version 1)
Quarter: 2019Q2

REPORT INFORMATION
  Report Type: Spontaneous
  Country: US (occurrence: US)
  Receive Date: 20190411
  Receipt Date: 20190411
  Transmission Date: 20190711
  Serious: No
  Sender: FDA-Public Use
  Company Number: None

PATIENT
  Sex: Female

DRUGS (1)
  1. MAKENA [Suspect]
     Active Substance: HYDROXYPROGESTERONE CAPROATE
     Dosage: OTHER DOSE:275MG/1.1M?
     Route: 058
     Dates: start: 201903

REACTIONS (2)
  - Hypoaesthesia [None]
  - Diarrhoea [None]
